FAERS Safety Report 4556476-2 (Version None)
Quarter: 2005Q1

REPORT INFORMATION
  Report Type: 
  Country: None (occurrence: None)
  Receive Date: 20050114
  Receipt Date: 20050105
  Transmission Date: 20050727
  Serious: Yes (Other)
  Sender: FDA-Public Use
  Company Number: US-SHR-03-014055

PATIENT
  Age: 65 Year
  Sex: Female

DRUGS (3)
  1. BETASERON [Suspect]
     Indication: RELAPSING-REMITTING MULTIPLE SCLEROSIS
     Dosage: SEE IMAGE
     Route: 058
     Dates: start: 20010412, end: 20041101
  2. BETASERON [Suspect]
     Indication: RELAPSING-REMITTING MULTIPLE SCLEROSIS
     Dosage: SEE IMAGE
     Route: 058
     Dates: start: 20041201
  3. NEURONTIN [Concomitant]

REACTIONS (3)
  - COLON CANCER [None]
  - LUNG NEOPLASM [None]
  - WHITE BLOOD CELL COUNT DECREASED [None]
